FAERS Safety Report 25025192 (Version 1)
Quarter: 2025Q1

REPORT INFORMATION
  Report Type: Spontaneous
  Country: US (occurrence: US)
  Receive Date: 20250228
  Receipt Date: 20250228
  Transmission Date: 20250408
  Serious: Yes (Hospitalization, Other)
  Sender: TEVA
  Company Number: US-TEVA-VS-3302435

PATIENT
  Age: 72 Year
  Sex: Female

DRUGS (1)
  1. AJOVY [Suspect]
     Active Substance: FREMANEZUMAB-VFRM
     Indication: Product used for unknown indication
     Dosage: 225MG/1.5ML
     Route: 058
     Dates: start: 202402

REACTIONS (6)
  - Hospitalisation [Unknown]
  - Asthma [Unknown]
  - Norovirus infection [Unknown]
  - Atrial fibrillation [Unknown]
  - Pneumonia bacterial [Unknown]
  - Pneumonia viral [Unknown]

NARRATIVE: CASE EVENT DATE: 20241001
